FAERS Safety Report 24297285 (Version 4)
Quarter: 2025Q4

REPORT INFORMATION
  Report Type: Spontaneous
  Country: US (occurrence: US)
  Receive Date: 20240909
  Receipt Date: 20251004
  Transmission Date: 20260117
  Serious: No
  Sender: SANOFI AVENTIS
  Company Number: US-SA-2024SA256806

PATIENT
  Sex: Male

DRUGS (1)
  1. CERDELGA [Suspect]
     Active Substance: ELIGLUSTAT
     Indication: Gaucher^s disease
     Dosage: 84 MG, BID (TAKE 1 CAPSULE BY MOUTH IN THE MORNING AND AT BEDTIME )
     Route: 048
     Dates: start: 201609

REACTIONS (1)
  - Product dose omission in error [Unknown]
